FAERS Safety Report 9185716 (Version 1)
Quarter: 2013Q1

REPORT INFORMATION
  Report Type: Spontaneous
  Country: US (occurrence: None)
  Receive Date: 20120628
  Receipt Date: 20120628
  Transmission Date: 20140127
  Serious: Yes (Other)
  Sender: FDA-Public Use
  Company Number: PHEH2011US01517

PATIENT
  Age: 81 Year
  Sex: Female

DRUGS (2)
  1. RECLAST [Suspect]
     Indication: OSTEOPOROSIS
     Dosage: YEARLY
     Dates: start: 20110808
  2. MACROBID (NITROFURANTOIN) [Concomitant]

REACTIONS (2)
  - Hypersensitivity [None]
  - Throat tightness [None]
